FAERS Safety Report 7157214-X (Version None)
Quarter: 2010Q4

REPORT INFORMATION
  Report Type: 
  Country: None (occurrence: None)
  Receive Date: 20101214
  Receipt Date: 20091209
  Transmission Date: 20110411
  Serious: No
  Sender: FDA-Public Use
  Company Number: US-ASTRAZENECA-2009SE30981

PATIENT
  Age: 57 Year
  Sex: Female
  Weight: 127 kg

DRUGS (5)
  1. CRESTOR [Suspect]
     Indication: BLOOD CHOLESTEROL INCREASED
     Route: 048
     Dates: start: 20091101, end: 20091201
  2. COUMADIN [Concomitant]
  3. PERCOCET [Concomitant]
  4. LIDODERM [Concomitant]
  5. OXYCONTIN [Concomitant]

REACTIONS (3)
  - DENTAL PLAQUE [None]
  - DYSGEUSIA [None]
  - SALIVARY HYPERSECRETION [None]
